FAERS Safety Report 18766207 (Version 1)
Quarter: 2021Q1

REPORT INFORMATION
  Report Type: Other
  Country: US (occurrence: US)
  Receive Date: 20210120
  Receipt Date: 20210120
  Transmission Date: 20210419
  Serious: No
  Sender: FDA-Public Use
  Company Number: US-ROCHE-2752947

PATIENT
  Sex: Female

DRUGS (2)
  1. OCREVUS [Suspect]
     Active Substance: OCRELIZUMAB
     Dosage: 2ND SPLIT DOSE
     Route: 065
     Dates: start: 20181004
  2. OCREVUS [Suspect]
     Active Substance: OCRELIZUMAB
     Indication: RELAPSING MULTIPLE SCLEROSIS
     Dosage: 1ST SPLIT DOSE; ONGOING: YES
     Route: 065
     Dates: start: 20180920

REACTIONS (1)
  - COVID-19 [Not Recovered/Not Resolved]
